FAERS Safety Report 5742843-8 (Version None)
Quarter: 2008Q2

REPORT INFORMATION
  Report Type: 
  Country: None (occurrence: None)
  Receive Date: 20080519
  Receipt Date: 20080509
  Transmission Date: 20081010
  Serious: Yes (Hospitalization)
  Sender: FDA-Public Use
  Company Number: US-JNJFOC-20080502092

PATIENT
  Sex: Male
  Weight: 80.74 kg

DRUGS (5)
  1. DURAGESIC-100 [Suspect]
     Indication: PAIN
     Route: 062
  2. FENTANYL TRANSDERMAL SYSTEM [Suspect]
     Indication: PAIN
     Route: 062
  3. ACTIQ [Concomitant]
     Indication: PAIN
     Route: 065
  4. KLONOPIN [Concomitant]
     Indication: CONVULSION
     Route: 048
  5. PREVACID [Concomitant]
     Indication: GASTRIC DISORDER
     Route: 048

REACTIONS (7)
  - APPLICATION SITE BLEEDING [None]
  - APPLICATION SITE REACTION [None]
  - APPLICATION SITE SCAB [None]
  - HEART RATE DECREASED [None]
  - HYPOTENSION [None]
  - SKIN DISORDER [None]
  - SOMNOLENCE [None]
